FAERS Safety Report 7475277-9 (Version None)
Quarter: 2011Q2

REPORT INFORMATION
  Report Type: 
  Country: None (occurrence: None)
  Receive Date: 20110505
  Receipt Date: 20110420
  Transmission Date: 20111010
  Serious: Yes (Hospitalization)
  Sender: FDA-Public Use
  Company Number: 1000020562

PATIENT
  Age: 81 Year
  Sex: Female

DRUGS (11)
  1. CEFTRIAXONE [Suspect]
     Indication: LUNG INFECTION
     Dosage: INTRAVENOUS (NOT OTHERWISE SPECIFIED)
     Route: 042
     Dates: start: 20110315, end: 20110316
  2. APROVEL (IRBESARTAN) (150 MILLIGRAM) (IRBESARTAN) [Concomitant]
  3. LERCAN (LERCANIDIPINE HYDROCHLORIDE) (LERCANIDIPINE HYDROCHLORIDE) [Concomitant]
  4. MOPRAL (OMEPRAZOLE) (OMEPRAZOLE) [Concomitant]
  5. HUMALOG (INSULIN) (INSULIN) [Concomitant]
  6. LANTUS (INSULIN GLARGINE) (INSULIN GLARGINE) [Concomitant]
  7. AVLOCARDYL (PROPRANOLOL) (PROPRANOLOL) [Concomitant]
  8. ESCITALOPRAM OXALATE [Suspect]
     Dosage: 1 DOSAGE FORM (1 DOSAGE FORMS,1 IN 1 D),ORAL
     Route: 048
  9. PREVISCAN (FLUINDIONE) (20 MILLIGRAM) [Suspect]
     Dosage: 10 MG (10 MG,1 IN 1 D),ORAL
     Route: 048
     Dates: end: 20110316
  10. CORTANCYL (PREDNISONE) (20 MILLIGRAM) (PREDNISONE) [Concomitant]
  11. FOSAVANCE (ALENDRONIC ACID, COLECALCIFEROL) (ALENDRONIC ACID, COLECALC [Concomitant]

REACTIONS (5)
  - GASTROINTESTINAL HAEMORRHAGE [None]
  - HAEMOGLOBIN DECREASED [None]
  - RECTAL HAEMORRHAGE [None]
  - DRUG INTERACTION [None]
  - INTERNATIONAL NORMALISED RATIO INCREASED [None]
